FAERS Safety Report 9010796 (Version 1)
Quarter: 2013Q1

REPORT INFORMATION
  Report Type: Spontaneous
  Country: US (occurrence: US)
  Receive Date: 20130109
  Receipt Date: 20130109
  Transmission Date: 20140127
  Serious: Yes (Other)
  Sender: FDA-Public Use
  Company Number: US-ASTELLAS-2012US011151

PATIENT
  Age: 76 Year
  Sex: Male
  Weight: 99 kg

DRUGS (8)
  1. VESICARE [Suspect]
     Indication: HYPERTONIC BLADDER
     Dosage: 5 MG, UID/QD
     Route: 048
     Dates: start: 201207, end: 201208
  2. SHARK CARTILAGE [Concomitant]
     Indication: PRODUCT USED FOR UNKNOWN INDICATION
     Dosage: 750 MG, UNKNOWN/D
     Route: 065
  3. BYSTOLIC [Concomitant]
     Indication: PRODUCT USED FOR UNKNOWN INDICATION
     Dosage: 5 MG, UNKNOWN/D
     Route: 065
  4. HYDROCHLOROTHIAZIDE [Concomitant]
     Indication: PRODUCT USED FOR UNKNOWN INDICATION
     Dosage: 25 MG, UNKNOWN/D
     Route: 065
  5. ALLOPURINOL [Concomitant]
     Indication: GOUT
     Dosage: 300 MG, UNKNOWN/D
     Route: 065
  6. VITAMIN D                          /00107901/ [Concomitant]
     Indication: PRODUCT USED FOR UNKNOWN INDICATION
     Dosage: UNK
     Route: 065
  7. KLOR-CON M10 [Concomitant]
     Indication: PRODUCT USED FOR UNKNOWN INDICATION
     Dosage: 10 MEQ, UNKNOWN/D
     Route: 065
  8. AMLODIPINE [Concomitant]
     Indication: PRODUCT USED FOR UNKNOWN INDICATION
     Dosage: 10 MG, UNKNOWN/D
     Route: 065

REACTIONS (4)
  - Drug ineffective [Recovered/Resolved]
  - Haemorrhage [Unknown]
  - Diarrhoea [Recovered/Resolved]
  - Unevaluable event [Unknown]
